FAERS Safety Report 6675665-4 (Version None)
Quarter: 2010Q2

REPORT INFORMATION
  Report Type: 
  Country: None (occurrence: None)
  Receive Date: 20100409
  Receipt Date: 20100326
  Transmission Date: 20101027
  Serious: Yes (Other)
  Sender: FDA-Public Use
  Company Number: ES-ELI_LILLY_AND_COMPANY-ES201003007868

PATIENT
  Sex: Female
  Weight: 65 kg

DRUGS (5)
  1. FORTEO [Suspect]
     Indication: OSTEOPOROSIS
     Dosage: 20 UG, DAILY (1/D)
     Route: 058
     Dates: start: 20081020
  2. PARIET [Concomitant]
     Dosage: UNK, DAILY (1/D)
     Route: 048
  3. DEPRAX [Concomitant]
     Dosage: UNK, UNKNOWN
     Route: 048
  4. HIDROFEROL [Concomitant]
     Dosage: UNK, DAILY (1/D)
     Route: 048
  5. URBAL [Concomitant]
     Indication: DYSPHAGIA
     Dosage: UNK, UNKNOWN
     Route: 048

REACTIONS (8)
  - APHONIA [None]
  - ASPIRATION BRONCHIAL [None]
  - DYSPHAGIA [None]
  - FALL [None]
  - OESOPHAGEAL POLYP [None]
  - VASCULAR RUPTURE [None]
  - VISUAL ACUITY REDUCED [None]
  - WEIGHT INCREASED [None]
